FAERS Safety Report 8373352-8 (Version None)
Quarter: 2012Q2

REPORT INFORMATION
  Report Type: 
  Country: None (occurrence: None)
  Receive Date: 20120521
  Receipt Date: 20111109
  Transmission Date: 20120825
  Serious: No
  Sender: FDA-Public Use
  Company Number: US-MYLANLABS-2011S1023098

PATIENT
  Age: 34 Year
  Sex: Female

DRUGS (1)
  1. METHOTREXATE [Suspect]
     Indication: ECTOPIC PREGNANCY
     Dosage: 109MG/4.36ML
     Dates: start: 20111007, end: 20111007

REACTIONS (2)
  - OFF LABEL USE [None]
  - EXPIRED DRUG ADMINISTERED [None]
